FAERS Safety Report 21528456 (Version 3)
Quarter: 2022Q4

REPORT INFORMATION
  Report Type: Spontaneous
  Country: JP (occurrence: JP)
  Receive Date: 20221031
  Receipt Date: 20221216
  Transmission Date: 20230113
  Serious: Yes (Other)
  Sender: FDA-Public Use
  Company Number: JP-TAKEDA-2022TJP076016

PATIENT

DRUGS (1)
  1. ZEJULA [Suspect]
     Active Substance: NIRAPARIB
     Indication: Ovarian cancer
     Dosage: UNK UNK, QD
     Route: 048
     Dates: start: 20221005

REACTIONS (3)
  - Malignant peritoneal neoplasm [Unknown]
  - Pleural effusion [Unknown]
  - Tumour marker increased [Recovering/Resolving]

NARRATIVE: CASE EVENT DATE: 20221019
